FAERS Safety Report 7321686-8 (Version None)
Quarter: 2011Q1

REPORT INFORMATION
  Report Type: 
  Country: None (occurrence: None)
  Receive Date: 20110215
  Receipt Date: 20110131
  Transmission Date: 20110831
  Serious: Yes (Other)
  Sender: FDA-Public Use
  Company Number: AUR-APL-2011-00441

PATIENT
  Sex: Female

DRUGS (7)
  1. ASPIRIN [Concomitant]
  2. ATENOLOL [Concomitant]
  3. CRESTOR [Concomitant]
  4. METFORMIN 500MG [Suspect]
     Dosage: 500MG-DAILY- MANY YRS AGO-ONGOING
  5. COLACE [Concomitant]
  6. PROVEX [Concomitant]
  7. ATIVAN [Concomitant]

REACTIONS (7)
  - ASTHENIA [None]
  - DIZZINESS [None]
  - ANXIETY [None]
  - HEART RATE IRREGULAR [None]
  - DEPRESSION [None]
  - FATIGUE [None]
  - PARAESTHESIA [None]
